FAERS Safety Report 7379607-8 (Version None)
Quarter: 2011Q1

REPORT INFORMATION
  Report Type: 
  Country: None (occurrence: None)
  Receive Date: 20110318
  Receipt Date: 20110311
  Transmission Date: 20110831
  Serious: Yes (Other)
  Sender: FDA-Public Use
  Company Number: A0917531A

PATIENT
  Age: 53 Year
  Sex: Male

DRUGS (4)
  1. TERAZOSIN HYDROCHLORIDE [Concomitant]
  2. OMEPRAZOLE [Concomitant]
  3. ASPIRIN + CAFFEINE + SALICYLAMIDE POWDER (ASPIRIN+CAFFEINE+SALICYLA) [Suspect]
     Indication: PRODUCT USED FOR UNKNOWN INDICATION
  4. NAPROXEN [Suspect]
     Indication: PAIN

REACTIONS (5)
  - HAEMATOCHEZIA [None]
  - RECTAL HAEMORRHAGE [None]
  - INCORRECT DRUG ADMINISTRATION DURATION [None]
  - ABDOMINAL PAIN [None]
  - DRUG INTERACTION [None]
